FAERS Safety Report 4738194-0 (Version None)
Quarter: 2005Q3

REPORT INFORMATION
  Report Type: 
  Country: None (occurrence: None)
  Receive Date: 20050808
  Receipt Date: 20050808
  Transmission Date: 20060218
  Serious: No
  Sender: FDA-Public Use
  Company Number: None

PATIENT
  Age: 85 Year
  Sex: Female
  Weight: 165.5 kg

DRUGS (8)
  1. FORTEO [Suspect]
     Indication: OSTEOPOROSIS
     Dosage: 20 UG SUBQ QD
     Route: 058
     Dates: start: 20050314, end: 20050726
  2. CELEBREX [Concomitant]
  3. SYNTHROID [Concomitant]
  4. ASPIRIN [Concomitant]
  5. LASIX [Concomitant]
  6. ZYRTEC [Concomitant]
  7. NORFLEX [Concomitant]
  8. DIGITEK [Concomitant]

REACTIONS (3)
  - AORTIC ANEURYSM [None]
  - BLOOD ALKALINE PHOSPHATASE INCREASED [None]
  - OSTEITIS DEFORMANS [None]
